FAERS Safety Report 11948125 (Version 1)
Quarter: 2016Q1

REPORT INFORMATION
  Report Type: Spontaneous
  Country: US (occurrence: US)
  Receive Date: 20160125
  Receipt Date: 20160125
  Transmission Date: 20160526
  Serious: Yes (Other)
  Sender: FDA-Public Use
  Company Number: US-JNJFOC-20120701692

PATIENT

DRUGS (15)
  1. TYLENOL WITH CODEINE [Suspect]
     Active Substance: ACETAMINOPHEN\CODEINE PHOSPHATE
     Indication: FEELING ABNORMAL
     Route: 065
  2. DURAGESIC [Suspect]
     Active Substance: FENTANYL
     Indication: FEELING ABNORMAL
     Route: 065
  3. OPIOIDS NOS [Suspect]
     Active Substance: UNSPECIFIED INGREDIENT
     Indication: FEELING ABNORMAL
     Route: 065
  4. TYLENOL WITH CODEINE [Suspect]
     Active Substance: ACETAMINOPHEN\CODEINE PHOSPHATE
     Indication: EUPHORIC MOOD
     Route: 065
  5. DURAGESIC [Suspect]
     Active Substance: FENTANYL
     Indication: EUPHORIC MOOD
     Route: 065
  6. OPIOIDS NOS [Suspect]
     Active Substance: UNSPECIFIED INGREDIENT
     Indication: SUBSTANCE USE
     Route: 065
  7. HYDROMORPHONE [Suspect]
     Active Substance: HYDROMORPHONE
     Indication: FEELING ABNORMAL
     Route: 065
  8. OXYCODONE [Suspect]
     Active Substance: OXYCODONE
     Indication: SUBSTANCE USE
     Route: 065
  9. OXYCODONE [Suspect]
     Active Substance: OXYCODONE
     Indication: FEELING ABNORMAL
     Route: 065
  10. HYDROMORPHONE [Suspect]
     Active Substance: HYDROMORPHONE
     Indication: SUBSTANCE USE
     Route: 065
  11. TYLENOL WITH CODEINE [Suspect]
     Active Substance: ACETAMINOPHEN\CODEINE PHOSPHATE
     Indication: SUBSTANCE USE
     Route: 065
  12. DURAGESIC [Suspect]
     Active Substance: FENTANYL
     Indication: SUBSTANCE USE
     Route: 065
  13. HYDROMORPHONE [Suspect]
     Active Substance: HYDROMORPHONE
     Indication: EUPHORIC MOOD
     Route: 065
  14. OXYCODONE [Suspect]
     Active Substance: OXYCODONE
     Indication: EUPHORIC MOOD
     Route: 065
  15. OPIOIDS NOS [Suspect]
     Active Substance: UNSPECIFIED INGREDIENT
     Indication: EUPHORIC MOOD
     Route: 065

REACTIONS (3)
  - Wrong technique in product usage process [Unknown]
  - Drug abuse [Unknown]
  - Drug diversion [Unknown]
